FAERS Safety Report 19163268 (Version 4)
Quarter: 2021Q4

REPORT INFORMATION
  Report Type: Report from Study
  Country: FR (occurrence: FR)
  Receive Date: 20210421
  Receipt Date: 20211011
  Transmission Date: 20220303
  Serious: Yes (Death, Hospitalization)
  Sender: FDA-Public Use
  Company Number: FR-PFIZER INC-2021438165

PATIENT

DRUGS (3)
  1. GEMCITABINE HYDROCHLORIDE [Suspect]
     Active Substance: GEMCITABINE HYDROCHLORIDE
     Indication: Diffuse large B-cell lymphoma
     Dosage: 1000 MG/M2, CYCLIC (DAY 2, EVERY TWO WEEKS AND CONTINUED FOR UP TO EIGHT CYCLES)
  2. OXALIPLATIN [Suspect]
     Active Substance: OXALIPLATIN
     Indication: Diffuse large B-cell lymphoma
     Dosage: 100 MG/M2, CYCLIC (DAY 2, EVERY TWO WEEKS AND CONTINUED FOR UP TO EIGHT CYCLES)
  3. RITUXIMAB [Suspect]
     Active Substance: RITUXIMAB
     Indication: Diffuse large B-cell lymphoma
     Dosage: 375 MG/M2, CYCLIC (ON D1 EVERY 2 WEEKS AND CONTINUED FOR UP TO EIGHT CYCLES)
     Route: 042

REACTIONS (1)
  - Febrile neutropenia [Fatal]
